FAERS Safety Report 9806491 (Version 1)
Quarter: 2014Q1

REPORT INFORMATION
  Report Type: Spontaneous
  Country: US (occurrence: US)
  Receive Date: 20140109
  Receipt Date: 20140109
  Transmission Date: 20141002
  Serious: Yes (Death, Other)
  Sender: FDA-Public Use
  Company Number: US-UCBSA-108318

PATIENT
  Age: 69 Year
  Sex: Male

DRUGS (9)
  1. ATORVASTATIN [Suspect]
  2. AMLODIPINE [Suspect]
  3. LITHIUM [Suspect]
  4. INSULIN [Suspect]
  5. HYDROCHLOROTHIAZIDE/FOSINOPRIL [Suspect]
  6. FOSINOPRIL [Suspect]
  7. DULOXETINE [Suspect]
  8. PAROXETINE [Suspect]
  9. ESOMEPRAZOLE [Suspect]

REACTIONS (1)
  - Completed suicide [Fatal]
